FAERS Safety Report 4619560-0 (Version None)
Quarter: 2005Q1

REPORT INFORMATION
  Report Type: 
  Country: None (occurrence: None)
  Receive Date: 20050318
  Receipt Date: 20050318
  Transmission Date: 20050727
  Serious: Yes (Hospitalization)
  Sender: FDA-Public Use
  Company Number: None

PATIENT
  Sex: Male
  Weight: 71.6683 kg

DRUGS (3)
  1. DEPAKOTE [Suspect]
     Indication: CONVULSION
     Dosage: PO [PRIOR TO ADMISSION]
     Route: 048
  2. DILANTIN [Suspect]
     Indication: CONVULSION
     Dosage: PO [ PRIOR TO ADMISSION]
     Route: 048
  3. ZOLOFT [Concomitant]

REACTIONS (3)
  - FEELING ABNORMAL [None]
  - TREMOR [None]
  - VERTIGO [None]
